FAERS Safety Report 5935603-6 (Version None)
Quarter: 2008Q4

REPORT INFORMATION
  Report Type: 
  Country: None (occurrence: None)
  Receive Date: 20081030
  Receipt Date: 20081020
  Transmission Date: 20090506
  Serious: Yes (Death)
  Sender: FDA-Public Use
  Company Number: B0543893A

PATIENT
  Age: 48 Year
  Sex: Male

DRUGS (7)
  1. ZIAGEN [Suspect]
     Indication: HIV INFECTION
     Route: 048
     Dates: start: 20040608
  2. RETROVIR [Suspect]
     Indication: HIV INFECTION
     Route: 048
     Dates: start: 20071221
  3. EPIVIR [Suspect]
     Indication: HIV INFECTION
     Route: 048
     Dates: start: 20040608, end: 20041104
  4. KALETRA [Suspect]
     Indication: HIV INFECTION
     Route: 065
     Dates: start: 20040608
  5. TELZIR [Concomitant]
     Indication: HIV INFECTION
     Route: 065
  6. NORVIR [Concomitant]
     Indication: HIV INFECTION
     Route: 065
  7. VIREAD [Concomitant]
     Indication: HIV INFECTION
     Route: 065

REACTIONS (1)
  - DEATH [None]
